FAERS Safety Report 5523615-6 (Version None)
Quarter: 2007Q4

REPORT INFORMATION
  Report Type: 
  Country: None (occurrence: None)
  Receive Date: 20071121
  Receipt Date: 20071114
  Transmission Date: 20080405
  Serious: Yes (Hospitalization)
  Sender: FDA-Public Use
  Company Number: JP-ASTRAZENECA-2007AP01797

PATIENT
  Age: 30989 Day
  Sex: Male

DRUGS (9)
  1. CASODEX [Suspect]
     Indication: PROSTATE CANCER
     Route: 048
     Dates: start: 20070215, end: 20070314
  2. ZOLADEX [Suspect]
     Indication: PROSTATE CANCER
     Route: 058
     Dates: start: 20070220, end: 20070314
  3. LASIX [Concomitant]
     Dates: start: 20070215
  4. BISPHONAL [Concomitant]
     Route: 041
     Dates: start: 20070215
  5. ELCITONIN [Concomitant]
     Route: 042
     Dates: start: 20070215
  6. VOLTAREN [Concomitant]
     Route: 048
     Dates: start: 20070215
  7. AMOBAN [Concomitant]
     Route: 048
     Dates: start: 20070221
  8. ATARAX [Concomitant]
     Route: 048
     Dates: start: 20070221
  9. SENIRAN [Concomitant]
     Route: 054
     Dates: start: 20070221

REACTIONS (1)
  - INTERSTITIAL LUNG DISEASE [None]
